FAERS Safety Report 5401878-5 (Version None)
Quarter: 2007Q3

REPORT INFORMATION
  Report Type: 
  Country: None (occurrence: None)
  Receive Date: 20070731
  Receipt Date: 20070724
  Transmission Date: 20080115
  Serious: Yes (Hospitalization)
  Sender: FDA-Public Use
  Company Number: US-ELI_LILLY_AND_COMPANY-US200707005969

PATIENT
  Age: 61 Year
  Sex: Female

DRUGS (15)
  1. BYETTA [Suspect]
     Indication: TYPE 2 DIABETES MELLITUS
     Dosage: 5 UG, 2/D
     Route: 058
     Dates: start: 20061101
  2. FOSAMAX [Concomitant]
     Indication: BONE DISORDER
     Dosage: UNK, WEEKLY (1/W)
  3. METFORMIN HCL [Concomitant]
     Indication: DIABETES MELLITUS
     Dosage: 500 MG, 2/D
     Route: 048
  4. GLYBURIDE [Concomitant]
     Indication: DIABETES MELLITUS
     Dosage: 2.5 MG, 2/D
     Route: 048
  5. FENTANYL [Concomitant]
     Indication: PAIN
     Dosage: 100 UG, UNK
     Route: 062
     Dates: start: 20061201
  6. PERCOCET [Concomitant]
     Indication: PAIN
     Dosage: 2 D/F, DAILY (1/D)
     Route: 048
     Dates: start: 20061201
  7. CALCIUM CITRATE [Concomitant]
     Dosage: 1 D/F, 3/D
     Route: 048
     Dates: start: 20061201
  8. LASIX [Concomitant]
     Dosage: 1 D/F, DAILY (1/D)
     Route: 048
  9. NEURONTIN [Concomitant]
     Indication: NERVE INJURY
     Dosage: 200 MG, 3/D
     Route: 048
  10. DIOVAN /SCH/ [Concomitant]
     Indication: BLOOD PRESSURE INCREASED
     Dosage: 80 MG, DAILY (1/D)
     Route: 048
  11. MAGNESIUM SULFATE [Concomitant]
  12. WARFARIN SODIUM [Concomitant]
     Dosage: 7.5 MG, 5/W
     Dates: start: 20061201
  13. WARFARIN SODIUM [Concomitant]
     Dosage: 5 MG, 2/W
     Dates: start: 20061201
  14. OXYCONTIN [Concomitant]
     Indication: PAIN
     Dosage: 20 MG, EACH MORNING
     Route: 048
     Dates: end: 20070101
  15. OXYCONTIN [Concomitant]
     Dosage: 10 MG, EACH EVENING
     Route: 048

REACTIONS (9)
  - COMPRESSION FRACTURE [None]
  - CONTUSION [None]
  - DEEP VEIN THROMBOSIS [None]
  - FALL [None]
  - FASCIITIS [None]
  - HIP FRACTURE [None]
  - JOINT SPRAIN [None]
  - PULMONARY EMBOLISM [None]
  - TENDONITIS [None]
